FAERS Safety Report 17834060 (Version 1)
Quarter: 2020Q2

REPORT INFORMATION
  Report Type: Spontaneous
  Country: US (occurrence: US)
  Receive Date: 20200527
  Receipt Date: 20200527
  Transmission Date: 20200714
  Serious: Yes (Disabling)
  Sender: FDA-Public Use
  Company Number: None

PATIENT
  Age: 57 Year
  Sex: Female
  Weight: 63.05 kg

DRUGS (2)
  1. MULTI/D/C/E/PROBIOTIC [Concomitant]
  2. CIPROFLOXACIN HCL [Suspect]
     Active Substance: CIPROFLOXACIN HYDROCHLORIDE
     Indication: URINARY TRACT INFECTION
     Dosage: ?          QUANTITY:3 PILLS (PRESCRIBED 14)?
     Route: 048
     Dates: start: 20190516, end: 20190517

REACTIONS (7)
  - Fatigue [None]
  - Gait inability [None]
  - Alopecia [None]
  - Product complaint [None]
  - Photosensitivity reaction [None]
  - Pain in extremity [None]
  - Product use complaint [None]

NARRATIVE: CASE EVENT DATE: 20190516
